FAERS Safety Report 12486975 (Version 1)
Quarter: 2016Q2

REPORT INFORMATION
  Report Type: Spontaneous
  Country: US (occurrence: None)
  Receive Date: 20160621
  Receipt Date: 20160621
  Transmission Date: 20160815
  Serious: Yes (Hospitalization, Disabling, Other)
  Sender: FDA-Public Use
  Company Number: None

PATIENT
  Sex: Female

DRUGS (4)
  1. LYRICA [Suspect]
     Active Substance: PREGABALIN
     Indication: COMPRESSION FRACTURE
     Route: 048
     Dates: start: 20151001, end: 20151230
  2. LASIX [Concomitant]
     Active Substance: FUROSEMIDE
  3. MAGNESIUM [Concomitant]
     Active Substance: MAGNESIUM
  4. VITAMIN D [Concomitant]
     Active Substance: CHOLECALCIFEROL

REACTIONS (10)
  - Heart rate increased [None]
  - Dizziness [None]
  - Confusional state [None]
  - Insomnia [None]
  - Dyspnoea [None]
  - Alopecia [None]
  - Blindness [None]
  - Oedema [None]
  - Incoherent [None]
  - Drug withdrawal syndrome [None]
